FAERS Safety Report 14036675 (Version 4)
Quarter: 2018Q1

REPORT INFORMATION
  Report Type: Report from Study
  Country: CA (occurrence: CA)
  Receive Date: 20171003
  Receipt Date: 20180109
  Transmission Date: 20180508
  Serious: Yes (Hospitalization, Other)
  Sender: FDA-Public Use
  Company Number: CA-IPSEN BIOPHARMACEUTICALS, INC.-2017-11348

PATIENT
  Age: 70 Year
  Sex: Male
  Weight: 75 kg

DRUGS (8)
  1. SOMATULINE AUTOGEL 120MG [Suspect]
     Active Substance: LANREOTIDE ACETATE
     Indication: CARCINOID SYNDROME
     Dosage: 120 MG
     Route: 058
     Dates: start: 20151010
  2. TAMSULOSIN [Concomitant]
     Active Substance: TAMSULOSIN
     Indication: PROSTATOMEGALY
     Route: 048
  3. DILAUDID [Concomitant]
     Active Substance: HYDROMORPHONE HYDROCHLORIDE
     Indication: PAIN
     Route: 048
  4. TELOTRISTAT ETIPRATE [Suspect]
     Active Substance: TELOTRISTAT ETIPRATE
     Indication: PRODUCT USED FOR UNKNOWN INDICATION
     Dosage: NOT REPORTED
     Route: 048
  5. COTAZYM [Concomitant]
     Active Substance: PANCRELIPASE
     Indication: ENZYME SUPPLEMENTATION
     Route: 048
  6. SOMATULINE AUTOGEL 120MG [Suspect]
     Active Substance: LANREOTIDE ACETATE
     Indication: NEUROENDOCRINE TUMOUR
  7. OLESTYR LIFE [Concomitant]
     Route: 048
  8. TYL #3 [Concomitant]
     Indication: PAIN
     Dosage: 300 MG/15 MG/30 MG
     Route: 048

REACTIONS (9)
  - Post procedural haemorrhage [Unknown]
  - Incision site swelling [Unknown]
  - Rectal haemorrhage [Recovered/Resolved]
  - Incision site erythema [Unknown]
  - Perihepatic abscess [Unknown]
  - Fistula [Unknown]
  - Infection [Unknown]
  - Inappropriate schedule of drug administration [Unknown]
  - Gallbladder perforation [Recovering/Resolving]

NARRATIVE: CASE EVENT DATE: 201709
